FAERS Safety Report 9030686 (Version 1)
Quarter: 2013Q1

REPORT INFORMATION
  Report Type: Spontaneous
  Country: US (occurrence: US)
  Receive Date: 20130123
  Receipt Date: 20130123
  Transmission Date: 20140127
  Serious: No
  Sender: FDA-Public Use
  Company Number: US-PFIZER INC-2013027021

PATIENT
  Age: 64 Year
  Sex: Female
  Weight: 64.4 kg

DRUGS (4)
  1. LYRICA [Suspect]
     Indication: PAIN IN EXTREMITY
     Dosage: 50 MG, 1X/DAY
     Route: 048
     Dates: start: 20130104, end: 20130116
  2. LYRICA [Suspect]
     Indication: BACK PAIN
     Dosage: 100 MG, 2X/DAY
     Route: 048
     Dates: start: 20130117, end: 201301
  3. LYRICA [Suspect]
     Dosage: 100 MG, 1X/DAY
     Dates: start: 201301
  4. BACLOFEN [Concomitant]
     Dosage: UNK

REACTIONS (5)
  - Discomfort [Recovering/Resolving]
  - Musculoskeletal stiffness [Recovering/Resolving]
  - Muscle tightness [Recovering/Resolving]
  - Muscle spasms [Recovering/Resolving]
  - Pain [Recovering/Resolving]
